FAERS Safety Report 4530063-4 (Version None)
Quarter: 2004Q4

REPORT INFORMATION
  Report Type: 
  Country: None (occurrence: None)
  Receive Date: 20041215
  Receipt Date: 20041025
  Transmission Date: 20050328
  Serious: Yes (Hospitalization, Disabling)
  Sender: FDA-Public Use
  Company Number: 2004243586US

PATIENT
  Sex: Female

DRUGS (2)
  1. CELEBREX [Suspect]
     Indication: JOINT INJURY
     Dosage: ORAL
     Route: 048
     Dates: start: 20040601
  2. VIOXX [Suspect]
     Indication: JOINT INJURY
     Dosage: 50 MG, SINGLE, ORAL
     Route: 048
     Dates: start: 20040601

REACTIONS (8)
  - ARTHRALGIA [None]
  - BLOOD PRESSURE INCREASED [None]
  - BLOOD PRESSURE SYSTOLIC INCREASED [None]
  - CEREBROVASCULAR ACCIDENT [None]
  - DECREASED APPETITE [None]
  - DRUG INEFFECTIVE [None]
  - DRUG INTERACTION [None]
  - FATIGUE [None]
